FAERS Safety Report 11192431 (Version 4)
Quarter: 2016Q1

REPORT INFORMATION
  Report Type: Report from Study
  Country: JP (occurrence: JP)
  Receive Date: 20150616
  Receipt Date: 20160303
  Transmission Date: 20160525
  Serious: Yes (Death, Other)
  Sender: FDA-Public Use
  Company Number: JP-PFIZER INC-2015198105

PATIENT
  Age: 65 Year
  Sex: Male
  Weight: 54 kg

DRUGS (10)
  1. NOVASTAN [Suspect]
     Active Substance: ARGATROBAN
     Indication: ANTICOAGULANT THERAPY
     Dosage: 10 MG, UNK
     Route: 040
     Dates: start: 20150604, end: 20150604
  2. NOVASTAN [Suspect]
     Active Substance: ARGATROBAN
     Dosage: (25 MG/H X 1H), WEEKLY
     Route: 041
     Dates: start: 20150604, end: 20150604
  3. LENDORMIN [Concomitant]
     Active Substance: BROTIZOLAM
     Indication: INSOMNIA
     Dosage: 0.25 MG, 1X/DAY
     Route: 048
     Dates: start: 20150427
  4. NOVASTAN [Suspect]
     Active Substance: ARGATROBAN
     Dosage: (10 MG/H X 1H), WEEKLY
     Route: 041
     Dates: start: 20150604, end: 20150604
  5. HEPARIN NA LOCK [Concomitant]
     Dosage: UNK
     Route: 065
     Dates: start: 20150426
  6. TAKECAB [Concomitant]
     Dosage: 20 MG, 1X/DAY
     Route: 048
     Dates: start: 20150527
  7. MIYA-BM [Concomitant]
     Active Substance: CLOSTRIDIUM BUTYRICUM SPORES STRAIN M-55
     Indication: PROPHYLAXIS
     Dosage: 3 DF, 1X/DAY
     Route: 048
     Dates: start: 20150421
  8. SLOW-K [Concomitant]
     Active Substance: POTASSIUM CHLORIDE
     Dosage: 600 MG, 1X/DAY
     Route: 048
     Dates: start: 20150522
  9. NOVASTAN [Suspect]
     Active Substance: ARGATROBAN
     Dosage: (20 MG/H X 1H), WEEKLY
     Route: 041
     Dates: start: 20150604, end: 20150604
  10. SPIRONOLACTONE. [Concomitant]
     Active Substance: SPIRONOLACTONE
     Dosage: 25 MG, 1X/DAY
     Route: 048
     Dates: start: 20150603

REACTIONS (1)
  - Upper gastrointestinal haemorrhage [Fatal]

NARRATIVE: CASE EVENT DATE: 20150604
